FAERS Safety Report 13134922 (Version 2)
Quarter: 2017Q1

REPORT INFORMATION
  Report Type: Spontaneous
  Country: FR (occurrence: FR)
  Receive Date: 20170120
  Receipt Date: 20170131
  Transmission Date: 20170428
  Serious: Yes (Hospitalization)
  Sender: FDA-Public Use
  Company Number: FR-TAKEDA-2017TUS000862

PATIENT
  Age: 68 Year
  Sex: Female

DRUGS (3)
  1. NORFLOXACIN [Suspect]
     Active Substance: NORFLOXACIN
     Indication: URINARY TRACT INFECTION
     Dosage: UNK
     Route: 065
     Dates: start: 20170112, end: 20170112
  2. BRINTELLIX [Suspect]
     Active Substance: VORTIOXETINE HYDROBROMIDE
     Indication: PRODUCT USED FOR UNKNOWN INDICATION
     Dosage: 5 MG, QD
     Route: 048
  3. LYSANXIA [Concomitant]
     Active Substance: PRAZEPAM
     Indication: PRODUCT USED FOR UNKNOWN INDICATION
     Dosage: UNK, QD
     Route: 065

REACTIONS (4)
  - Pruritus generalised [Recovering/Resolving]
  - Erythema [Unknown]
  - Palatal swelling [Unknown]
  - Burning sensation [Unknown]

NARRATIVE: CASE EVENT DATE: 20170112
